FAERS Safety Report 7758550-6 (Version None)
Quarter: 2011Q3

REPORT INFORMATION
  Report Type: 
  Country: None (occurrence: None)
  Receive Date: 20110919
  Receipt Date: 20110907
  Transmission Date: 20111222
  Serious: Yes (Hospitalization, Other)
  Sender: FDA-Public Use
  Company Number: US-ELI_LILLY_AND_COMPANY-US201109002300

PATIENT
  Age: 57 Year
  Sex: Female

DRUGS (22)
  1. FORTEO [Suspect]
     Dosage: 20 UG, QD
     Route: 065
     Dates: start: 20110831
  2. CYMBALTA [Concomitant]
  3. LISINOPRIL [Concomitant]
  4. FERROUS SULFATE TAB [Concomitant]
  5. PREDNISONE [Concomitant]
  6. SOTALOL HCL [Concomitant]
  7. VITAMIN A [Concomitant]
  8. MAGNESIUM [Concomitant]
  9. BONIVA [Concomitant]
  10. AMITIZA [Concomitant]
  11. SUPER B COMPLEX [Concomitant]
  12. SYNTHROID [Concomitant]
  13. VITAMIN TAB [Concomitant]
  14. COUMADIN [Concomitant]
  15. PRILOSEC [Concomitant]
  16. VITAMIN E                            /001105/ [Concomitant]
  17. NAPROXEN (ALEVE) [Concomitant]
  18. VITAMIN D [Concomitant]
  19. CENTRUM                            /00554501/ [Concomitant]
  20. FORTEO [Suspect]
     Indication: OSTEOPOROSIS
     Dosage: 20 UG, QD
     Route: 065
     Dates: start: 20060101
  21. LASIX [Concomitant]
  22. CALCIUM CARBONATE [Concomitant]

REACTIONS (6)
  - UPPER LIMB FRACTURE [None]
  - SPINAL FRACTURE [None]
  - PULMONARY HYPERTENSION [None]
  - PELVIC FRACTURE [None]
  - ARTHRALGIA [None]
  - BURSITIS [None]
